FAERS Safety Report 18375112 (Version 1)
Quarter: 2020Q4

REPORT INFORMATION
  Report Type: Spontaneous
  Country: KR (occurrence: KR)
  Receive Date: 20201012
  Receipt Date: 20201012
  Transmission Date: 20210114
  Serious: Yes (Other)
  Sender: FDA-Public Use
  Company Number: KR-ASTRAZENECA-2020SF29302

PATIENT
  Sex: Female

DRUGS (1)
  1. IRESSA [Suspect]
     Active Substance: GEFITINIB
     Indication: NEOPLASM MALIGNANT
     Route: 048

REACTIONS (13)
  - Productive cough [Unknown]
  - Onychoclasis [Unknown]
  - Epistaxis [Recovering/Resolving]
  - Malignant neoplasm progression [Unknown]
  - Dyspepsia [Recovering/Resolving]
  - Blood glucose increased [Unknown]
  - Pruritus [Unknown]
  - Weight decreased [Unknown]
  - Hypertension [Unknown]
  - Dizziness [Unknown]
  - Inflammation [Unknown]
  - Proteinuria [Unknown]
  - Gastritis [Recovering/Resolving]
